FAERS Safety Report 25653795 (Version 2)
Quarter: 2025Q4

REPORT INFORMATION
  Report Type: Spontaneous
  Country: US (occurrence: US)
  Receive Date: 20250807
  Receipt Date: 20251026
  Transmission Date: 20260117
  Serious: No
  Sender: SANOFI AVENTIS
  Company Number: US-SA-2025SA227956

PATIENT
  Age: 46 Year
  Sex: Male

DRUGS (2)
  1. DUPIXENT [Suspect]
     Active Substance: DUPILUMAB
     Indication: Dermatitis atopic
     Dosage: 600 MG, 1X
     Dates: start: 202505, end: 202505
  2. DUPIXENT [Suspect]
     Active Substance: DUPILUMAB
     Dosage: 300 MG, QOW
     Dates: start: 2025

REACTIONS (10)
  - Lip dry [Unknown]
  - Eyelid skin dryness [Unknown]
  - Eyelids pruritus [Unknown]
  - Ocular hyperaemia [Unknown]
  - Erythema of eyelid [Unknown]
  - Swelling of eyelid [Unknown]
  - Eye swelling [Unknown]
  - Eye pruritus [Unknown]
  - Blepharitis [Unknown]
  - Eye inflammation [Unknown]

NARRATIVE: CASE EVENT DATE: 20250101
